FAERS Safety Report 11190469 (Version 1)
Quarter: 2015Q2

REPORT INFORMATION
  Report Type: Spontaneous
  Country: US (occurrence: US)
  Receive Date: 20150615
  Receipt Date: 20150615
  Transmission Date: 20150821
  Serious: No
  Sender: FDA-Public Use
  Company Number: US-009507513-1506USA000472

PATIENT
  Sex: Female

DRUGS (3)
  1. PROVENTIL [Suspect]
     Active Substance: ALBUTEROL
     Indication: HYPERSENSITIVITY
     Dosage: 1-2 PUFFS AS NEEDED, Q4H
     Route: 055
  2. PERCOCET [Concomitant]
     Active Substance: ACETAMINOPHEN\OXYCODONE HYDROCHLORIDE
  3. VALIUM [Concomitant]
     Active Substance: DIAZEPAM

REACTIONS (4)
  - Product quality issue [Unknown]
  - Dyspnoea [Recovering/Resolving]
  - Drug dose omission [Unknown]
  - Drug administration error [Unknown]
